FAERS Safety Report 15155257 (Version 1)
Quarter: 2018Q3

REPORT INFORMATION
  Report Type: Spontaneous
  Country: AT (occurrence: AT)
  Receive Date: 20180717
  Receipt Date: 20180717
  Transmission Date: 20181010
  Serious: Yes (Hospitalization)
  Sender: FDA-Public Use
  Company Number: AT-SA-2018SA181837

PATIENT
  Age: 53 Year
  Sex: Female
  Weight: 58 kg

DRUGS (12)
  1. TRASTUZUMAB. [Suspect]
     Active Substance: TRASTUZUMAB
     Indication: HER-2 POSITIVE BREAST CANCER
     Route: 042
     Dates: start: 20171009
  2. PERTUZUMAB. [Suspect]
     Active Substance: PERTUZUMAB
     Indication: HER-2 POSITIVE BREAST CANCER
     Route: 042
     Dates: start: 20171009
  3. PANTOLOC [PANTOPRAZOLE] [Concomitant]
     Dates: start: 20171009
  4. NEULASTA [Concomitant]
     Active Substance: PEGFILGRASTIM
     Dates: start: 20171010
  5. PULMICORT TURBUHALER [Concomitant]
     Active Substance: BUDESONIDE
     Dates: start: 20171009, end: 20171019
  6. ZOLPIDEM [Concomitant]
     Active Substance: ZOLPIDEM\ZOLPIDEM TARTRATE
     Dates: start: 20100915
  7. TRITTICO [Concomitant]
     Active Substance: TRAZODONE HYDROCHLORIDE
     Dates: start: 20100915
  8. TAXOTERE [Suspect]
     Active Substance: DOCETAXEL
     Indication: HER-2 POSITIVE BREAST CANCER
     Dosage: 75 MG/M2, Q3W
     Route: 042
     Dates: start: 20171009, end: 20171009
  9. CIPROXIN [CIPROFLOXACIN] [Concomitant]
     Dates: start: 20171009, end: 20171014
  10. COMBIVENT [Concomitant]
     Active Substance: ALBUTEROL SULFATE\IPRATROPIUM BROMIDE
     Dates: start: 20171009, end: 20171019
  11. SULTANOL [Concomitant]
     Active Substance: ALBUTEROL SULFATE
     Dates: start: 20171009, end: 20171019
  12. FORTECORTIN [DEXAMETHASONE] [Concomitant]
     Dates: start: 20171009

REACTIONS (1)
  - Diverticulitis [Recovered/Resolved]

NARRATIVE: CASE EVENT DATE: 20171106
